FAERS Safety Report 18985222 (Version 2)
Quarter: 2021Q3

REPORT INFORMATION
  Report Type: Spontaneous
  Country: US (occurrence: US)
  Receive Date: 20210309
  Receipt Date: 20210830
  Transmission Date: 20211014
  Serious: No
  Sender: FDA-Public Use
  Company Number: US-BRISTOL-MYERS SQUIBB COMPANY-BMS-2021-023199

PATIENT
  Age: 46 Year
  Sex: Female

DRUGS (2)
  1. SPRYCEL [Suspect]
     Active Substance: DASATINIB
     Indication: CHRONIC MYELOID LEUKAEMIA
     Dosage: 50 MILLIGRAM, BID
     Route: 048
     Dates: start: 20180413
  2. SPRYCEL [Suspect]
     Active Substance: DASATINIB
     Dosage: 50 MILLIGRAM, BID
     Route: 048
     Dates: start: 20180628

REACTIONS (4)
  - Erythema [Unknown]
  - Skin ulcer [Unknown]
  - Rash [Unknown]
  - Tinea infection [Unknown]
